FAERS Safety Report 21752114 (Version 1)
Quarter: 2022Q4

REPORT INFORMATION
  Report Type: Spontaneous
  Country: JP (occurrence: JP)
  Receive Date: 20221220
  Receipt Date: 20221220
  Transmission Date: 20230112
  Serious: Yes (Other)
  Sender: FDA-Public Use
  Company Number: JP-MSD-M2022-51359

PATIENT
  Age: 70 Year
  Sex: Male

DRUGS (1)
  1. KEYTRUDA [Suspect]
     Active Substance: PEMBROLIZUMAB
     Indication: Transitional cell carcinoma
     Dosage: 200 MILLIGRAM, Q3W
     Route: 041
     Dates: start: 20220413, end: 20221017

REACTIONS (3)
  - Depressed level of consciousness [Unknown]
  - Immune-mediated hyperthyroidism [Unknown]
  - Blood corticotrophin decreased [Unknown]

NARRATIVE: CASE EVENT DATE: 20220101
